FAERS Safety Report 8067779-1 (Version None)
Quarter: 2012Q1

REPORT INFORMATION
  Report Type: 
  Country: None (occurrence: None)
  Receive Date: 20120124
  Receipt Date: 20120118
  Transmission Date: 20120608
  Serious: Yes (Hospitalization)
  Sender: FDA-Public Use
  Company Number: IT-PFIZER INC-2011238417

PATIENT
  Age: 61 Year
  Sex: Female

DRUGS (3)
  1. LINCOCIN [Suspect]
     Indication: TOOTH ABSCESS
     Dosage: 1 UNIT DOSE, DAILY
     Route: 030
     Dates: start: 20110823, end: 20110823
  2. KETOPROFEN [Suspect]
     Indication: TOOTH ABSCESS
     Dosage: 1 UNIT DOSE, DAILY
     Route: 048
     Dates: start: 20110823, end: 20110823
  3. LANSOPRAZOLE [Concomitant]
     Dosage: 30 MG, UNK
     Dates: start: 20110823, end: 20110823

REACTIONS (5)
  - ANGIOEDEMA [None]
  - DYSPNOEA [None]
  - OEDEMA [None]
  - ORAL DISORDER [None]
  - URTICARIA [None]
